FAERS Safety Report 19877595 (Version 1)
Quarter: 2021Q3

REPORT INFORMATION
  Report Type: Spontaneous
  Country: US (occurrence: US)
  Receive Date: 20210924
  Receipt Date: 20210924
  Transmission Date: 20211014
  Serious: Yes (Other)
  Sender: FDA-Public Use
  Company Number: US-SA-2021SA310172

PATIENT
  Age: 85 Year
  Sex: Female

DRUGS (2)
  1. STOOL SOFTENER (DOCUSATE) [Concomitant]
     Active Substance: DOCUSATE
     Dosage: UNK
  2. DULCOLAX PINK [Suspect]
     Active Substance: BISACODYL
     Dosage: 1 DF
     Dates: start: 20210914

REACTIONS (6)
  - Weight decreased [Unknown]
  - Hypoaesthesia [Unknown]
  - Peripheral swelling [Unknown]
  - Dry mouth [Unknown]
  - Diverticulitis [Unknown]
  - Pain in extremity [Unknown]
